FAERS Safety Report 8391611-X (Version None)
Quarter: 2012Q1

REPORT INFORMATION
  Report Type: 
  Country: None (occurrence: None)
  Receive Date: 20120323
  Receipt Date: 20110414
  Transmission Date: 20120608
  Serious: Yes (Other)
  Sender: FDA-Public Use
  Company Number: 163-21880-11031368

PATIENT
  Age: 59 Year
  Sex: Female
  Weight: 64.4 kg

DRUGS (2)
  1. REVLIMID [Suspect]
     Indication: MYELODYSPLASTIC SYNDROME
     Dosage: 10 MG, 1 IN 1 D, PO
     Route: 048
     Dates: start: 20110114
  2. REVLIMID [Suspect]

REACTIONS (5)
  - OEDEMA PERIPHERAL [None]
  - LEUKOPENIA [None]
  - VISION BLURRED [None]
  - EPISTAXIS [None]
  - ANAEMIA [None]
